FAERS Safety Report 9214194 (Version 1)
Quarter: 2013Q1

REPORT INFORMATION
  Report Type: Spontaneous
  Country: US (occurrence: None)
  Receive Date: 20120827
  Receipt Date: 20120827
  Transmission Date: 20140127
  Serious: No
  Sender: FDA-Public Use
  Company Number: 355036

PATIENT
  Age: 68 Year
  Sex: Male

DRUGS (3)
  1. VICTOZA [Suspect]
     Indication: TYPE 2 DIABETES MELLITUS
     Dosage: 1.2 MG, QD, SUBCUTANEOUS
     Route: 058
  2. JANUVA (SITAGLIPTIN PHOSPHATE) [Concomitant]
  3. GLIMEPIRIDE (GLIMEPIRIDE) [Suspect]

REACTIONS (2)
  - Dizziness postural [None]
  - Asthenia [None]
